FAERS Safety Report 20751302 (Version 2)
Quarter: 2022Q3

REPORT INFORMATION
  Report Type: Spontaneous
  Country: US (occurrence: US)
  Receive Date: 20220426
  Receipt Date: 20220706
  Transmission Date: 20221027
  Serious: No
  Sender: FDA-Public Use
  Company Number: US-BRISTOL-MYERS SQUIBB COMPANY-2022-028365

PATIENT
  Age: 72 Year
  Sex: Female
  Weight: 79.3 kg

DRUGS (2)
  1. REVLIMID [Suspect]
     Active Substance: LENALIDOMIDE
     Indication: Plasma cell myeloma
     Dosage: FREQ: D1-14 EVERY 21 DAYS
     Route: 048
     Dates: start: 20210701
  2. REVLIMID [Suspect]
     Active Substance: LENALIDOMIDE
     Dosage: D1-D14Q21DAY
     Route: 048
     Dates: start: 20210719

REACTIONS (1)
  - Diarrhoea [Not Recovered/Not Resolved]
